FAERS Safety Report 23739141 (Version 1)
Quarter: 2024Q2

REPORT INFORMATION
  Report Type: Report from Study
  Country: US (occurrence: None)
  Receive Date: 20240413
  Receipt Date: 20240413
  Transmission Date: 20240716
  Serious: Yes (Life-Threatening, Other)
  Sender: FDA-Public Use
  Company Number: 2022A001361

PATIENT
  Age: 22875 Day
  Sex: Female

DRUGS (1)
  1. FASENRA [Suspect]
     Active Substance: BENRALIZUMAB
     Dosage: 30.0MG/ML UNKNOWN
     Route: 058
     Dates: start: 202103

REACTIONS (1)
  - Narcolepsy [Unknown]

NARRATIVE: CASE EVENT DATE: 20211229
